FAERS Safety Report 18473233 (Version 1)
Quarter: 2020Q4

REPORT INFORMATION
  Report Type: Spontaneous
  Country: US (occurrence: US)
  Receive Date: 20201105
  Receipt Date: 20201105
  Transmission Date: 20210114
  Serious: Yes (Death)
  Sender: FDA-Public Use
  Company Number: None

PATIENT
  Sex: Male

DRUGS (9)
  1. SODIUM CHLOR-- [Concomitant]
  2. PHENYTOIN-- [Concomitant]
  3. IPRATROPLUM-- [Concomitant]
  4. VIGABATRIN, 500MG [Suspect]
     Active Substance: VIGABATRIN
     Indication: LENNOX-GASTAUT SYNDROME
     Route: 048
     Dates: start: 20190828
  5. HYDROCORT-- [Concomitant]
  6. ESOMEPRAZOLE-- [Concomitant]
  7. ALBUTEROL-- [Concomitant]
  8. IEVOTHYROXINE-- [Concomitant]
  9. IEVETIRACETAM-- [Concomitant]

REACTIONS (1)
  - Death [None]
